FAERS Safety Report 21985151 (Version 1)
Quarter: 2023Q1

REPORT INFORMATION
  Report Type: Spontaneous
  Country: US (occurrence: US)
  Receive Date: 20230213
  Receipt Date: 20230213
  Transmission Date: 20230418
  Serious: Yes (Hospitalization)
  Sender: FDA-Public Use
  Company Number: US-MYLANLABS-2023M1014673

PATIENT
  Age: 65 Year
  Sex: Male

DRUGS (1)
  1. WARFARIN [Interacting]
     Active Substance: WARFARIN
     Indication: Ischaemic stroke
     Dosage: UNK UNK, QD  RECEIVED AVERAGE DAILY DOSE OF WARFARIN 10MG AT NIGHT
     Route: 065

REACTIONS (3)
  - Anticoagulation drug level above therapeutic [Unknown]
  - Food interaction [Unknown]
  - Drug interaction [Unknown]
